FAERS Safety Report 22653886 (Version 1)
Quarter: 2023Q2

REPORT INFORMATION
  Report Type: Spontaneous
  Country: US (occurrence: US)
  Receive Date: 20230629
  Receipt Date: 20230629
  Transmission Date: 20230721
  Serious: No
  Sender: FDA-Public Use
  Company Number: US-ABBVIE-5309179

PATIENT
  Sex: Male

DRUGS (1)
  1. VRAYLAR [Suspect]
     Active Substance: CARIPRAZINE
     Indication: Major depression
     Route: 048
     Dates: start: 202306, end: 202306

REACTIONS (2)
  - Dizziness [Recovered/Resolved]
  - Presyncope [Recovering/Resolving]

NARRATIVE: CASE EVENT DATE: 20230601
